FAERS Safety Report 4590123-9 (Version None)
Quarter: 2005Q1

REPORT INFORMATION
  Report Type: 
  Country: None (occurrence: None)
  Receive Date: 20050217
  Receipt Date: 20050209
  Transmission Date: 20050727
  Serious: Yes (Hospitalization, Other)
  Sender: FDA-Public Use
  Company Number: HQWYE741120JAN05

PATIENT
  Age: 50 Year
  Sex: Female

DRUGS (3)
  1. PROGRAF [Suspect]
     Indication: PROPHYLAXIS AGAINST TRANSPLANT REJECTION
     Dosage: 7 - 6 MG, ORAL; 4 MG, ORAL
     Route: 048
     Dates: start: 20041022, end: 20050101
  2. PROGRAF [Suspect]
     Indication: PROPHYLAXIS AGAINST TRANSPLANT REJECTION
     Dosage: 7 - 6 MG, ORAL; 4 MG, ORAL
     Route: 048
     Dates: start: 20050101
  3. CELLCEPT [Suspect]
     Indication: PROPHYLAXIS AGAINST TRANSPLANT REJECTION
     Dosage: 2 G TOTAL, ORAL
     Route: 048
     Dates: start: 20041022

REACTIONS (5)
  - BLOOD CREATININE INCREASED [None]
  - CYTOMEGALOVIRUS INFECTION [None]
  - IMMUNOSUPPRESSION [None]
  - POST PROCEDURAL COMPLICATION [None]
  - URETERIC STENOSIS [None]
